FAERS Safety Report 12489980 (Version 1)
Quarter: 2016Q2

REPORT INFORMATION
  Report Type: Report from Study
  Country: NL (occurrence: NL)
  Receive Date: 20160622
  Receipt Date: 20160622
  Transmission Date: 20160815
  Serious: Yes (Life-Threatening)
  Sender: FDA-Public Use
  Company Number: NL-ABBVIE-16P-114-1657626-00

PATIENT
  Sex: Female

DRUGS (1)
  1. DUODOPA [Suspect]
     Active Substance: CARBIDOPA\LEVODOPA
     Indication: PARKINSON^S DISEASE
     Dosage: MORNING DOSE: 7.0, CONTINUOUS DOSE: 4.8, EXTRA DOSE: 2.0, NIGHT DOSE: 3.0
     Route: 050
     Dates: start: 20080612

REACTIONS (1)
  - Asthenia [Not Recovered/Not Resolved]
